FAERS Safety Report 7487645-X (Version None)
Quarter: 2011Q2

REPORT INFORMATION
  Report Type: 
  Country: None (occurrence: None)
  Receive Date: 20110518
  Receipt Date: 20091122
  Transmission Date: 20111010
  Serious: Yes (Death, Other)
  Sender: FDA-Public Use
  Company Number: US-BAYER-200939936NA

PATIENT
  Age: 63 Year
  Sex: Male
  Weight: 86 kg

DRUGS (16)
  1. SUCCINYLCHOLINE CHLORIDE [Concomitant]
     Dosage: 140 MG, UNK
     Route: 042
     Dates: start: 20010207, end: 20010207
  2. PANCURONIUM BROMIDE [Concomitant]
     Dosage: 8 MG, UNK
     Route: 042
     Dates: start: 20010207, end: 20010207
  3. AMIODARONE HCL [Concomitant]
     Dosage: UNK
     Route: 042
     Dates: start: 20010207, end: 20010207
  4. NOREPINEPHRINE BITARTRATE [Concomitant]
     Dosage: UNK
     Route: 042
     Dates: start: 20010207, end: 20010207
  5. NITROGLYCERIN [Concomitant]
     Dosage: UNK
     Route: 042
     Dates: start: 20010207, end: 20010207
  6. VERSED [Concomitant]
     Dosage: 5 MG, UNK
     Route: 042
     Dates: start: 20010207, end: 20010207
  7. VANCOMYCIN [Concomitant]
     Dosage: 850 MG, UNK
     Route: 042
     Dates: start: 20010207, end: 20010207
  8. FENTANYL [Concomitant]
     Dosage: 500 MCG
     Route: 042
     Dates: start: 20010207, end: 20010207
  9. HEPARIN [Concomitant]
     Dosage: 26 K-UNITS
     Route: 042
     Dates: start: 20010207, end: 20010207
  10. PROPOFOL [Concomitant]
     Dosage: UNK
     Route: 042
     Dates: start: 20010207, end: 20010207
  11. DOPAMINE HCL [Concomitant]
     Dosage: UNK
     Route: 042
     Dates: start: 20010207, end: 20010207
  12. TRASYLOL [Suspect]
     Indication: CORONARY ARTERY BYPASS
     Dosage: 1ML INITIAL TEST DOSE
     Route: 042
     Dates: start: 20010207, end: 20010207
  13. MILRINONE [Concomitant]
     Dosage: 5 MG, UNK
     Route: 042
     Dates: start: 20010207, end: 20010207
  14. REGULAR INSULIN [Concomitant]
     Dosage: 20 U, UNK
     Route: 042
     Dates: start: 20010207, end: 20010207
  15. PROTAMINE SULFATE [Concomitant]
     Dosage: 400 MG, UNK
     Route: 042
     Dates: start: 20010207, end: 20010207
  16. CEFTAZIDIME [Concomitant]
     Dosage: 1000 MG, UNK
     Route: 042
     Dates: start: 20010207, end: 20010207

REACTIONS (13)
  - ANXIETY [None]
  - UNEVALUABLE EVENT [None]
  - RENAL IMPAIRMENT [None]
  - STRESS [None]
  - MULTI-ORGAN FAILURE [None]
  - FEAR [None]
  - INJURY [None]
  - DEATH [None]
  - ANHEDONIA [None]
  - RENAL INJURY [None]
  - RENAL FAILURE [None]
  - PAIN [None]
  - EMOTIONAL DISTRESS [None]
